FAERS Safety Report 5930679-4 (Version None)
Quarter: 2008Q4

REPORT INFORMATION
  Report Type: 
  Country: None (occurrence: None)
  Receive Date: 20081024
  Receipt Date: 20081024
  Transmission Date: 20090506
  Serious: No
  Sender: FDA-Public Use
  Company Number: None

PATIENT

DRUGS (1)
  1. NITRO-BID [Suspect]
     Indication: ANGINA PECTORIS
     Dosage: 1 GRAM TOP
     Route: 061
     Dates: start: 20080601, end: 20081023

REACTIONS (3)
  - INCORRECT DOSE ADMINISTERED [None]
  - MEDICATION ERROR [None]
  - PRODUCT QUALITY ISSUE [None]
